FAERS Safety Report 20403551 (Version 2)
Quarter: 2022Q1

REPORT INFORMATION
  Report Type: Spontaneous
  Country: AR (occurrence: None)
  Receive Date: 20220131
  Receipt Date: 20220201
  Transmission Date: 20220423
  Serious: Yes (Hospitalization, Other)
  Sender: FDA-Public Use
  Company Number: AR-ROCHE-3008239

PATIENT
  Sex: Male
  Weight: 60 kg

DRUGS (1)
  1. HEMLIBRA [Suspect]
     Active Substance: EMICIZUMAB-KXWH
     Indication: Factor VIII deficiency
     Route: 065
     Dates: start: 20210706

REACTIONS (5)
  - Appendicitis [Unknown]
  - Haemoperitoneum [Unknown]
  - Post procedural haematoma [Unknown]
  - Haematoma muscle [Unknown]
  - Haemorrhage [Unknown]
